FAERS Safety Report 10371079 (Version 1)
Quarter: 2014Q3

REPORT INFORMATION
  Report Type: Report from Study
  Country: LB (occurrence: LB)
  Receive Date: 20140808
  Receipt Date: 20140808
  Transmission Date: 20150326
  Serious: Yes (Hospitalization)
  Sender: FDA-Public Use
  Company Number: LB-SA-2014SA104359

PATIENT
  Age: 49 Year
  Sex: Male

DRUGS (8)
  1. TRADJENTA [Concomitant]
     Active Substance: LINAGLIPTIN
     Indication: DIABETES MELLITUS
     Route: 048
  2. ASPICOT [Concomitant]
     Active Substance: ASPIRIN
     Route: 048
  3. VASCOR [Concomitant]
     Active Substance: BEPRIDIL HYDROCHLORIDE
     Route: 048
  4. GLUCOPHAGE [Concomitant]
     Active Substance: METFORMIN HYDROCHLORIDE
     Route: 048
  5. LANTUS SOLOSTAR [Suspect]
     Active Substance: INSULIN GLARGINE
     Indication: DIABETES MELLITUS
     Dosage: DOSE:30 UNIT(S)
     Route: 058
  6. CONCOR [Concomitant]
     Active Substance: BISOPROLOL FUMARATE
     Route: 048
  7. TRITEC [Concomitant]
     Active Substance: RANITIDINE BISMUTH CITRATE
     Route: 048
  8. ALL OTHER THERAPEUTIC PRODUCTS [Concomitant]
     Active Substance: UNSPECIFIED INGREDIENT
     Route: 048

REACTIONS (2)
  - Coronary artery disease [Recovering/Resolving]
  - Dyspnoea [Recovering/Resolving]

NARRATIVE: CASE EVENT DATE: 20140620
